FAERS Safety Report 9863272 (Version 1)
Quarter: 2014Q1

REPORT INFORMATION
  Report Type: Spontaneous
  Country: US (occurrence: US)
  Receive Date: 20140203
  Receipt Date: 20140203
  Transmission Date: 20141002
  Serious: No
  Sender: FDA-Public Use
  Company Number: US-TARO-2013P1022066

PATIENT
  Age: 72 Year
  Sex: Female
  Weight: 83.92 kg

DRUGS (6)
  1. NYSTATIN + TRIAMCINOLONE ACETONIDE CREAM USP [Suspect]
     Indication: PRURITUS
     Route: 061
     Dates: start: 20131214, end: 20131215
  2. SIMVASTATIN [Concomitant]
  3. MONTELUKAST [Concomitant]
  4. QUETIAPINE [Concomitant]
  5. AMITRIPTYLINE [Concomitant]
  6. BAYER BABY ASPIRIN [Concomitant]

REACTIONS (1)
  - Drug ineffective [Not Recovered/Not Resolved]
